FAERS Safety Report 5689833-1 (Version None)
Quarter: 2008Q1

REPORT INFORMATION
  Report Type: 
  Country: None (occurrence: None)
  Receive Date: 20080331
  Receipt Date: 20080331
  Transmission Date: 20080703
  Serious: Yes (Other)
  Sender: FDA-Public Use
  Company Number: None

PATIENT
  Age: 58 Year
  Sex: Male
  Weight: 104.3273 kg

DRUGS (2)
  1. CHANTIX [Suspect]
     Indication: TOBACCO ABUSE
     Dosage: 1MG 2X DAILY DENTAL
     Route: 004
     Dates: start: 20080218, end: 20080319
  2. CHANTIX [Suspect]

REACTIONS (18)
  - ABNORMAL DREAMS [None]
  - AGNOSIA [None]
  - AGORAPHOBIA [None]
  - ANGER [None]
  - APHASIA [None]
  - APRAXIA [None]
  - CENTRAL PAIN SYNDROME [None]
  - CONDITION AGGRAVATED [None]
  - DEMENTIA [None]
  - DEPRESSION [None]
  - DISEASE RECURRENCE [None]
  - HYPERPATHIA [None]
  - ILL-DEFINED DISORDER [None]
  - MIGRAINE [None]
  - PANIC REACTION [None]
  - SUICIDAL IDEATION [None]
  - TIC [None]
  - TREMOR [None]
